FAERS Safety Report 10519423 (Version 1)
Quarter: 2014Q4

REPORT INFORMATION
  Report Type: Spontaneous
  Country: US (occurrence: None)
  Receive Date: 20141014
  Receipt Date: 20141014
  Transmission Date: 20150528
  Serious: Yes (Other)
  Sender: FDA-Public Use
  Company Number: None

PATIENT
  Age: 55 Year
  Sex: Female
  Weight: 77 kg

DRUGS (9)
  1. TRUVADA [Concomitant]
     Active Substance: EMTRICITABINE\TENOFOVIR DISOPROXIL FUMARATE
  2. SOVALDI [Suspect]
     Active Substance: SOFOSBUVIR
     Dosage: 1 TAB QD ORAL
     Route: 048
  3. SOFOSBUVIR [Concomitant]
     Active Substance: SOFOSBUVIR
  4. MORPHINE CR [Concomitant]
  5. RITONAVIR. [Concomitant]
     Active Substance: RITONAVIR
  6. ATAZANAVIR [Suspect]
     Active Substance: ATAZANAVIR
     Route: 048
  7. OMEGA-3 FATTY ACIDS [Concomitant]
     Active Substance: OMEGA-3 FATTY ACIDS
  8. RIBAVIRIN. [Concomitant]
     Active Substance: RIBAVIRIN
  9. OXYCODONE [Concomitant]
     Active Substance: OXYCODONE

REACTIONS (3)
  - Jaundice [None]
  - Condition aggravated [None]
  - Blood bilirubin increased [None]

NARRATIVE: CASE EVENT DATE: 20141006
